FAERS Safety Report 22029197 (Version 1)
Quarter: 2023Q1

REPORT INFORMATION
  Report Type: Spontaneous
  Country: AU (occurrence: AU)
  Receive Date: 20230223
  Receipt Date: 20230223
  Transmission Date: 20230418
  Serious: Yes (Other)
  Sender: FDA-Public Use
  Company Number: AU-GE HEALTHCARE-2023CSU001081

PATIENT
  Age: 24 Year
  Sex: Female
  Weight: 84 kg

DRUGS (2)
  1. CLARISCAN [Suspect]
     Active Substance: GADOTERATE MEGLUMINE
     Indication: Pituitary scan
     Dosage: 2.793 GM/10 ML, ONCE
     Route: 042
     Dates: start: 20230218, end: 20230218
  2. CLARISCAN [Suspect]
     Active Substance: GADOTERATE MEGLUMINE
     Indication: Prolactin-producing pituitary tumour

REACTIONS (2)
  - Choking sensation [Recovered/Resolved]
  - Throat tightness [Recovered/Resolved]

NARRATIVE: CASE EVENT DATE: 20230218
